FAERS Safety Report 13819910 (Version 1)
Quarter: 2017Q3

REPORT INFORMATION
  Report Type: Spontaneous
  Country: DE (occurrence: None)
  Receive Date: 20170731
  Receipt Date: 20170731
  Transmission Date: 20171127
  Serious: Yes (Other)
  Sender: FDA-Public Use
  Company Number: 20171022

PATIENT

DRUGS (2)
  1. FERINJECT [Suspect]
     Active Substance: FERRIC CARBOXYMALTOSE
     Indication: GASTROINTESTINAL DISORDER
     Route: 041
  2. VENOFER [Suspect]
     Active Substance: IRON SUCROSE
     Indication: GASTROINTESTINAL DISORDER
     Route: 041

REACTIONS (3)
  - Fracture [None]
  - Osteomalacia [None]
  - Off label use [None]
